FAERS Safety Report 23977542 (Version 1)
Quarter: 2024Q2

REPORT INFORMATION
  Report Type: Spontaneous
  Country: US (occurrence: None)
  Receive Date: 20240613
  Receipt Date: 20240613
  Transmission Date: 20240716
  Serious: Yes (Other)
  Sender: FDA-Public Use
  Company Number: None

PATIENT

DRUGS (1)
  1. PARAGARD T 380A [Suspect]
     Active Substance: COPPER

REACTIONS (8)
  - Inflammation [None]
  - Abdominal distension [None]
  - Ovarian cyst [None]
  - Device dislocation [None]
  - Hormone level abnormal [None]
  - Anxiety [None]
  - Premenstrual syndrome [None]
  - Complication associated with device [None]
